FAERS Safety Report 15452879 (Version 3)
Quarter: 2018Q4

REPORT INFORMATION
  Report Type: Spontaneous
  Country: US (occurrence: US)
  Receive Date: 20181001
  Receipt Date: 20181109
  Transmission Date: 20190204
  Serious: No
  Sender: FDA-Public Use
  Company Number: US-BAUSCH-BL-2018-024995

PATIENT
  Age: 63 Year
  Sex: Female
  Weight: 40.86 kg

DRUGS (1)
  1. LOTEMAX [Suspect]
     Active Substance: LOTEPREDNOL ETABONATE
     Indication: EYE IRRITATION
     Dosage: ONE DROP IN RIGHT EYE BEFORE BEDTIME
     Route: 047
     Dates: start: 20180904, end: 201809

REACTIONS (7)
  - Eye pruritus [Recovering/Resolving]
  - Drug hypersensitivity [Unknown]
  - Eye swelling [Recovered/Resolved]
  - Ocular hyperaemia [Recovering/Resolving]
  - Headache [Recovered/Resolved]
  - Deposit eye [Recovered/Resolved]
  - Eye pain [Recovered/Resolved]

NARRATIVE: CASE EVENT DATE: 20180905
